FAERS Safety Report 5724755-9 (Version None)
Quarter: 2008Q2

REPORT INFORMATION
  Report Type: 
  Country: None (occurrence: None)
  Receive Date: 20080430
  Receipt Date: 20080430
  Transmission Date: 20081010
  Serious: Yes (Death, Hospitalization)
  Sender: FDA-Public Use
  Company Number: None

PATIENT
  Age: 66 Year
  Sex: Male
  Weight: 85.73 kg

DRUGS (1)
  1. PHENYTOIN [Suspect]
     Indication: CONVULSION
     Dosage: 300 MG AT BEDTIME PO
     Route: 048
     Dates: start: 20080205, end: 20080327

REACTIONS (2)
  - INNER EAR DISORDER [None]
  - STEVENS-JOHNSON SYNDROME [None]
